FAERS Safety Report 8914298 (Version 2)
Quarter: 2012Q4

REPORT INFORMATION
  Report Type: 
  Country: FR (occurrence: FR)
  Receive Date: 20121119
  Receipt Date: 20121127
  Transmission Date: 20130627
  Serious: Yes (Hospitalization, Other)
  Sender: FDA-Public Use
  Company Number: FR-JNJFOC-2010029494

PATIENT
  Age: 7 Year
  Sex: Male

DRUGS (3)
  1. VIRLIX [Suspect]
     Route: 048
  2. VIRLIX [Suspect]
     Indication: HYPERSENSITIVITY
     Dosage: Daily Dose Text: 5 DROPS, ONCE
     Route: 048
     Dates: start: 20101127, end: 20101127
  3. CLARITIN [Concomitant]
     Indication: ALLERGIC RESPIRATORY DISEASE
     Dosage: Daily Dose Text: Unknown
     Route: 065

REACTIONS (9)
  - Oculogyric crisis [Not Recovered/Not Resolved]
  - Loss of consciousness [Not Recovered/Not Resolved]
  - Head injury [Not Recovered/Not Resolved]
  - Traumatic haematoma [Not Recovered/Not Resolved]
  - Grunting [Not Recovered/Not Resolved]
  - Malaise [Not Recovered/Not Resolved]
  - Fall [Not Recovered/Not Resolved]
  - Nausea [Not Recovered/Not Resolved]
  - Hyperhidrosis [Not Recovered/Not Resolved]
